FAERS Safety Report 16456894 (Version 1)
Quarter: 2019Q3

REPORT INFORMATION
  Report Type: Spontaneous
  Country: US (occurrence: US)
  Receive Date: 20190619
  Receipt Date: 20190619
  Transmission Date: 20191004
  Serious: Yes (Other)
  Sender: FDA-Public Use
  Company Number: None

PATIENT
  Age: 87 Year
  Sex: Female
  Weight: 54.45 kg

DRUGS (22)
  1. LACTULOSE. [Concomitant]
     Active Substance: LACTULOSE
  2. DEXTROSE. [Concomitant]
     Active Substance: DEXTROSE
  3. FARAHEME [Concomitant]
  4. DILAUDID [Concomitant]
     Active Substance: HYDROMORPHONE HYDROCHLORIDE
  5. POTASSIUM CHLORIDE. [Concomitant]
     Active Substance: POTASSIUM CHLORIDE
  6. ZOMETA [Concomitant]
     Active Substance: ZOLEDRONIC ACID
  7. PEROCCET [Concomitant]
  8. MEDROL [Concomitant]
     Active Substance: METHYLPREDNISOLONE
  9. FENTANYL. [Concomitant]
     Active Substance: FENTANYL
  10. SANCUSO [Concomitant]
     Active Substance: GRANISETRON
  11. ZOFRAN ODT [Concomitant]
     Active Substance: ONDANSETRON HYDROCHLORIDE
  12. MEGACE [Concomitant]
     Active Substance: MEGESTROL ACETATE
  13. FASLODEX [Concomitant]
     Active Substance: FULVESTRANT
  14. CAPECITABINE. [Suspect]
     Active Substance: CAPECITABINE
     Indication: BREAST CANCER
     Route: 048
     Dates: start: 20190616
  15. ASPIRIN. [Concomitant]
     Active Substance: ASPIRIN
  16. HYDROCORTISONE. [Concomitant]
     Active Substance: HYDROCORTISONE
  17. XGEVA [Concomitant]
     Active Substance: DENOSUMAB
  18. ATIVAN [Concomitant]
     Active Substance: LORAZEPAM
  19. DEXAMETHASONE. [Concomitant]
     Active Substance: DEXAMETHASONE
  20. GRANISETRON [Concomitant]
     Active Substance: GRANISETRON
  21. NORMAL SALINE FLUSH [Concomitant]
     Active Substance: SODIUM CHLORIDE
  22. FLUOROURACIL. [Concomitant]
     Active Substance: FLUOROURACIL

REACTIONS (1)
  - Skin exfoliation [None]

NARRATIVE: CASE EVENT DATE: 20190619
